FAERS Safety Report 5924732-9 (Version None)
Quarter: 2008Q4

REPORT INFORMATION
  Report Type: 
  Country: None (occurrence: None)
  Receive Date: 20081016
  Receipt Date: 20081001
  Transmission Date: 20090506
  Serious: Yes (Other)
  Sender: FDA-Public Use
  Company Number: 2008-184668-NL

PATIENT
  Age: 28 Year
  Sex: Female
  Weight: 49.9 kg

DRUGS (2)
  1. NUVARING [Suspect]
     Indication: CONTRACEPTION
     Dosage: 3 WEEKS IN, 1 WEEK OUT
     Dates: start: 20080801, end: 20081005
  2. PROPYLTHIOURACIL NI [Concomitant]

REACTIONS (5)
  - CHROMATURIA [None]
  - HEPATIC ENZYME INCREASED [None]
  - HEPATOMEGALY [None]
  - OCULAR HYPERAEMIA [None]
  - PRURITUS GENERALISED [None]
